FAERS Safety Report 7852809-X (Version None)
Quarter: 2011Q4

REPORT INFORMATION
  Report Type: 
  Country: None (occurrence: None)
  Receive Date: 20111026
  Receipt Date: 20111018
  Transmission Date: 20120403
  Serious: Yes (Hospitalization)
  Sender: FDA-Public Use
  Company Number: US-ALEXION PHARMACEUTICALS INC.-A201101562

PATIENT
  Sex: Male
  Weight: 64.853 kg

DRUGS (1)
  1. SOLIRIS [Suspect]
     Indication: PAROXYSMAL NOCTURNAL HAEMOGLOBINURIA
     Dosage: 900 MG, Q2W
     Route: 042

REACTIONS (5)
  - WEIGHT DECREASED [None]
  - RENAL FAILURE ACUTE [None]
  - VIRAL INFECTION [None]
  - BLOOD GLUCOSE INCREASED [None]
  - HAEMOLYSIS [None]
